FAERS Safety Report 8448434-2 (Version None)
Quarter: 2012Q2

REPORT INFORMATION
  Report Type: 
  Country: None (occurrence: None)
  Receive Date: 20120619
  Receipt Date: 20120606
  Transmission Date: 20120825
  Serious: Yes (Hospitalization)
  Sender: FDA-Public Use
  Company Number: JP-ROCHE-1076886

PATIENT
  Age: 77 Year
  Sex: Female

DRUGS (2)
  1. PEGASYS [Suspect]
     Dosage: DOSAGE IS UNCERTAIN.
     Route: 058
     Dates: start: 20110401, end: 20110401
  2. PEGASYS [Suspect]
     Indication: HEPATIC CIRRHOSIS
     Dosage: DOSAGE IS UNCERTAIN.
     Route: 058
     Dates: start: 20110101, end: 20110401

REACTIONS (1)
  - MYASTHENIA GRAVIS [None]
